FAERS Safety Report 4848854-9 (Version None)
Quarter: 2005Q4

REPORT INFORMATION
  Report Type: 
  Country: None (occurrence: None)
  Receive Date: 20051121
  Receipt Date: 20050908
  Transmission Date: 20060501
  Serious: Yes (Hospitalization)
  Sender: FDA-Public Use
  Company Number: 05P-163-0310524-00

PATIENT
  Sex: Female

DRUGS (2)
  1. DEPAKOTE ER [Suspect]
     Indication: SCHIZOPHRENIA
     Dosage: 500 MG, 6 IN 1 D, PER ORAL;  PER ORAL
     Route: 048
     Dates: end: 20050823
  2. DEPAKOTE ER [Suspect]
     Indication: SCHIZOPHRENIA
     Dosage: 500 MG, 6 IN 1 D, PER ORAL;  PER ORAL
     Route: 048
     Dates: start: 20050825

REACTIONS (2)
  - AMMONIA INCREASED [None]
  - DRUG LEVEL INCREASED [None]
